FAERS Safety Report 4970374-1 (Version None)
Quarter: 2006Q2

REPORT INFORMATION
  Report Type: 
  Country: None (occurrence: None)
  Receive Date: 20060412
  Receipt Date: 20060404
  Transmission Date: 20061013
  Serious: Yes (Hospitalization, Other)
  Sender: FDA-Public Use
  Company Number: US-GLAXOSMITHKLINE-A0600350A

PATIENT
  Sex: Female

DRUGS (4)
  1. WELLBUTRIN SR [Suspect]
     Indication: DEPRESSION
     Dosage: 150MG TWICE PER DAY
     Route: 048
  2. WELLBUTRIN XL [Suspect]
     Indication: DEPRESSION
     Dosage: 300MG PER DAY
     Route: 048
  3. CYMBALTA [Suspect]
     Indication: BACK PAIN
     Route: 048
     Dates: start: 20050901
  4. ULTRAM [Concomitant]

REACTIONS (3)
  - DYSKINESIA [None]
  - INCOHERENT [None]
  - RESTLESS LEGS SYNDROME [None]
